FAERS Safety Report 12270340 (Version 1)
Quarter: 2016Q2

REPORT INFORMATION
  Report Type: Spontaneous
  Country: US (occurrence: US)
  Receive Date: 20160415
  Receipt Date: 20160415
  Transmission Date: 20160815
  Serious: Yes (Other)
  Sender: FDA-Public Use
  Company Number: US-TEVA-652296ACC

PATIENT
  Age: 32 Year
  Sex: Female
  Weight: 94.43 kg

DRUGS (1)
  1. PARAGARD T 380A [Suspect]
     Active Substance: COPPER
     Indication: CONTRACEPTION
     Dates: start: 20160330

REACTIONS (2)
  - Smear cervix abnormal [Not Recovered/Not Resolved]
  - Colposcopy abnormal [Not Recovered/Not Resolved]

NARRATIVE: CASE EVENT DATE: 20160330
